FAERS Safety Report 9705028 (Version 2)
Quarter: 2014Q1

REPORT INFORMATION
  Report Type: Spontaneous
  Country: US (occurrence: US)
  Receive Date: 20131122
  Receipt Date: 20140228
  Transmission Date: 20141002
  Serious: No
  Sender: FDA-Public Use
  Company Number: US-009507513-1311USA009593

PATIENT
  Age: 67 Year
  Sex: Male
  Weight: 68.27 kg

DRUGS (5)
  1. OXYTROL FOR WOMEN [Suspect]
     Indication: HYPERTONIC BLADDER
     Dosage: 1 DF, Q4D
     Route: 062
  2. OXYTROL FOR WOMEN [Suspect]
     Indication: POLLAKIURIA
  3. DETROL LA [Concomitant]
     Indication: POLLAKIURIA
     Dosage: UNK, UNKNOWN
  4. SANCTURA [Concomitant]
     Indication: POLLAKIURIA
     Dosage: UNK, UNKNOWN
  5. URELLE [Concomitant]
     Indication: POLLAKIURIA
     Dosage: UNK, UNKNOWN

REACTIONS (3)
  - Abdominal discomfort [Recovered/Resolved]
  - Off label use [Unknown]
  - Drug effect decreased [Unknown]
